FAERS Safety Report 5635759-9 (Version None)
Quarter: 2008Q1

REPORT INFORMATION
  Report Type: 
  Country: None (occurrence: None)
  Receive Date: 20080220
  Receipt Date: 20080129
  Transmission Date: 20080703
  Serious: Yes (Hospitalization)
  Sender: FDA-Public Use
  Company Number: 2008S1001449

PATIENT
  Age: 2 Year
  Sex: Male

DRUGS (2)
  1. KALMA (ALPRAZOLAM) [Suspect]
     Indication: ACCIDENTAL DRUG INTAKE BY CHILD
     Dosage: 2 MG; TABLET; ORAL; ONCE
     Dates: start: 20080123, end: 20080123
  2. KALMA (ALPRAZOLAM) [Suspect]
     Indication: ACCIDENTAL DRUG INTAKE BY CHILD
     Dosage: 2 MG; TABLET; ORAL; ONCE
     Dates: start: 20080123, end: 20080123

REACTIONS (5)
  - ACCIDENTAL DRUG INTAKE BY CHILD [None]
  - ACCIDENTAL OVERDOSE [None]
  - GAIT DISTURBANCE [None]
  - SOMNOLENCE [None]
  - STRESS [None]
